FAERS Safety Report 8894777 (Version 1)
Quarter: 2012Q4

REPORT INFORMATION
  Report Type: 
  Country: CA (occurrence: CA)
  Receive Date: 20121107
  Receipt Date: 20121107
  Transmission Date: 20130627
  Serious: Yes (Other)
  Sender: FDA-Public Use
  Company Number: PHHY2008CA10121

PATIENT
  Sex: Male

DRUGS (3)
  1. SANDOSTATIN LAR [Suspect]
     Indication: ACROMEGALY
     Dosage: 30 mg, QMO
     Route: 030
     Dates: start: 20080211, end: 20081104
  2. METFORMIN [Concomitant]
     Dosage: 500 mg, BID
  3. CRESTOR [Concomitant]
     Dosage: 10 mg, UNK

REACTIONS (14)
  - Jaw disorder [Not Recovered/Not Resolved]
  - Bone disorder [Not Recovered/Not Resolved]
  - Blood growth hormone increased [Unknown]
  - Pain in extremity [Unknown]
  - Loose tooth [Unknown]
  - Pain in jaw [Unknown]
  - Malaise [Unknown]
  - Musculoskeletal pain [Unknown]
  - Gait disturbance [Unknown]
  - Limb discomfort [Unknown]
  - Anxiety [Unknown]
  - Headache [Unknown]
  - Injection site pain [Unknown]
  - Drug ineffective [Not Recovered/Not Resolved]
